FAERS Safety Report 25465509 (Version 4)
Quarter: 2025Q3

REPORT INFORMATION
  Report Type: Spontaneous
  Country: PY (occurrence: PY)
  Receive Date: 20250623
  Receipt Date: 20250820
  Transmission Date: 20251021
  Serious: Yes (Disabling, Other)
  Sender: BRISTOL-MYERS SQUIBB COMPANY
  Company Number: PY-BRISTOL-MYERS SQUIBB COMPANY-2025-087954

PATIENT
  Age: 53 Year
  Sex: Male

DRUGS (2)
  1. OPDIVO [Suspect]
     Active Substance: NIVOLUMAB
     Indication: Renal cancer metastatic
  2. OPDIVO [Suspect]
     Active Substance: NIVOLUMAB
     Route: 042

REACTIONS (2)
  - Linear IgA disease [Recovering/Resolving]
  - Dermatitis bullous [Recovering/Resolving]

NARRATIVE: CASE EVENT DATE: 20250615
